FAERS Safety Report 22299177 (Version 1)
Quarter: 2023Q2

REPORT INFORMATION
  Report Type: Report from Study
  Country: GB (occurrence: GB)
  Receive Date: 20230509
  Receipt Date: 20230509
  Transmission Date: 20230722
  Serious: Yes (Other)
  Sender: FDA-Public Use
  Company Number: GB-002147023-NVSC2023GB104522

PATIENT
  Age: 23 Year
  Sex: Male

DRUGS (1)
  1. ERELZI [Suspect]
     Active Substance: ETANERCEPT-SZZS
     Indication: Crohn^s disease
     Dosage: UNK
     Route: 065

REACTIONS (8)
  - Crohn^s disease [Unknown]
  - Fatigue [Unknown]
  - Abdominal pain upper [Unknown]
  - Weight decreased [Unknown]
  - Illness [Unknown]
  - Stress [Unknown]
  - Product dose omission issue [Unknown]
  - Product use in unapproved indication [Unknown]
